FAERS Safety Report 9980996 (Version 2)
Quarter: 2014Q1

REPORT INFORMATION
  Report Type: Spontaneous
  Country: US (occurrence: US)
  Receive Date: 20140307
  Receipt Date: 20140314
  Transmission Date: 20141002
  Serious: No
  Sender: FDA-Public Use
  Company Number: US-PFIZER INC-2014065813

PATIENT
  Age: 63 Year
  Sex: Female
  Weight: 100 kg

DRUGS (3)
  1. LYRICA [Suspect]
     Indication: DIABETIC NEUROPATHY
     Dosage: 300 MG, 2X/DAY
     Route: 048
     Dates: start: 2012, end: 201401
  2. PERCOCET [Concomitant]
     Indication: PAIN
     Dosage: UNK
  3. PERCOCET [Concomitant]
     Indication: BACK PAIN

REACTIONS (2)
  - Glycosylated haemoglobin increased [Unknown]
  - Pain [Unknown]
